FAERS Safety Report 9856163 (Version 1)
Quarter: 2014Q1

REPORT INFORMATION
  Report Type: Spontaneous
  Country: JP (occurrence: JP)
  Receive Date: 20140130
  Receipt Date: 20140130
  Transmission Date: 20141002
  Serious: Yes (Death, Hospitalization)
  Sender: FDA-Public Use
  Company Number: PHHY2014JP009347

PATIENT
  Age: 49 Year
  Sex: Female

DRUGS (8)
  1. CICLOSPORIN [Suspect]
     Indication: BEHCET^S SYNDROME
  2. CICLOSPORIN [Suspect]
     Indication: MYELODYSPLASTIC SYNDROME
  3. INFLIXIMAB [Suspect]
     Indication: BEHCET^S SYNDROME
  4. INFLIXIMAB [Suspect]
     Indication: MYELODYSPLASTIC SYNDROME
  5. CORTICOSTEROIDS [Suspect]
     Indication: BEHCET^S SYNDROME
  6. CORTICOSTEROIDS [Suspect]
     Indication: MYELODYSPLASTIC SYNDROME
  7. SULFASALAZINE [Concomitant]
  8. TNF [Concomitant]

REACTIONS (5)
  - Sepsis [Fatal]
  - Pneumonia bacterial [Unknown]
  - Staphylococcal infection [Unknown]
  - Mycobacterium avium complex infection [Unknown]
  - Drug ineffective [Unknown]
